FAERS Safety Report 10691070 (Version 4)
Quarter: 2015Q1

REPORT INFORMATION
  Report Type: Spontaneous
  Country: US (occurrence: US)
  Receive Date: 20150105
  Receipt Date: 20150217
  Transmission Date: 20150720
  Serious: Yes (Other)
  Sender: FDA-Public Use
  Company Number: US-009507513-1412USA010178

PATIENT
  Age: 24 Year
  Sex: Female
  Weight: 51.7 kg

DRUGS (2)
  1. NEXPLANON [Suspect]
     Active Substance: ETONOGESTREL
     Indication: CONTRACEPTION
     Dosage: 1 ROD ^ONCE^ IN THE LEFT ARM
     Route: 059
     Dates: start: 20141014, end: 20141223
  2. IMPLANON [Concomitant]
     Active Substance: ETONOGESTREL
     Dosage: UNK
     Route: 059
     Dates: end: 20141014

REACTIONS (12)
  - Surgery [Unknown]
  - Hypokinesia [Unknown]
  - Device difficult to use [Unknown]
  - Device dislocation [Unknown]
  - Paraesthesia [Unknown]
  - Implant site fibrosis [Unknown]
  - Hypoaesthesia [Unknown]
  - Muscular weakness [Unknown]
  - Implant site pain [Not Recovered/Not Resolved]
  - Pain in extremity [Unknown]
  - Metrorrhagia [Not Recovered/Not Resolved]
  - Cardiac disorder [Unknown]

NARRATIVE: CASE EVENT DATE: 2014
